FAERS Safety Report 8771213 (Version 1)
Quarter: 2012Q4

REPORT INFORMATION
  Report Type: 
  Country: PT (occurrence: PT)
  Receive Date: 20120906
  Receipt Date: 20120906
  Transmission Date: 20130627
  Serious: Yes (Other)
  Sender: FDA-Public Use
  Company Number: PT-ROCHE-1117138

PATIENT
  Age: 68 Year
  Sex: Female
  Weight: 57 kg

DRUGS (5)
  1. BONVIVA [Suspect]
     Indication: OSTEOPOROSIS
     Route: 048
     Dates: start: 201201, end: 201205
  2. TELMISARTAN [Concomitant]
     Indication: HYPERTENSION
     Route: 048
     Dates: start: 2009
  3. HYDROCHLOROTHIAZIDE [Concomitant]
     Indication: HYPERTENSION
     Route: 048
     Dates: start: 2009
  4. LERCANIDIPINE [Concomitant]
     Indication: HYPERTENSION
     Route: 048
     Dates: start: 201010
  5. SERTRALINE [Concomitant]
     Indication: DEPRESSION
     Route: 048
     Dates: start: 201112

REACTIONS (2)
  - Abdominal distension [Recovered/Resolved]
  - Face oedema [Recovered/Resolved]
